FAERS Safety Report 9064338 (Version 1)
Quarter: 2013Q1

REPORT INFORMATION
  Report Type: Spontaneous
  Country: US (occurrence: US)
  Receive Date: 20130213
  Receipt Date: 20130213
  Transmission Date: 20140127
  Serious: Yes (Other)
  Sender: FDA-Public Use
  Company Number: US-ASTRAZENECA-2013SE08684

PATIENT
  Age: 56 Year
  Sex: Female
  Weight: 70.8 kg

DRUGS (11)
  1. OMEPRAZOLE [Suspect]
     Indication: GASTROOESOPHAGEAL REFLUX DISEASE
     Route: 048
  2. OMEPRAZOLE [Suspect]
     Indication: DYSPEPSIA
     Route: 048
  3. NEXIUM [Suspect]
     Indication: GASTROOESOPHAGEAL REFLUX DISEASE
     Route: 048
     Dates: start: 20130123, end: 20130202
  4. SIMVASTATIN [Concomitant]
     Indication: BLOOD CHOLESTEROL ABNORMAL
     Dates: start: 2003
  5. FLEXERIL [Concomitant]
     Indication: MUSCLE SPASMS
     Dates: start: 1997, end: 2010
  6. FLEXERIL [Concomitant]
     Indication: MUSCLE SPASMS
     Dates: start: 2010
  7. KADIANN MORPHINE SULFATE [Concomitant]
     Indication: LIMB CRUSHING INJURY
     Dates: start: 2008, end: 2012
  8. KADIANN MORPHINE SULFATE [Concomitant]
     Indication: LIMB CRUSHING INJURY
     Dates: start: 2012
  9. PERCOSET [Concomitant]
     Indication: CRUSH INJURY
  10. LORTAB [Concomitant]
     Indication: CRUSH INJURY
  11. ZANTAC OTC [Concomitant]
     Indication: GASTROOESOPHAGEAL REFLUX DISEASE

REACTIONS (4)
  - Limb crushing injury [Unknown]
  - Muscle spasms [Unknown]
  - Body height decreased [Unknown]
  - Hypersomnia [Unknown]
